FAERS Safety Report 22167698 (Version 1)
Quarter: 2023Q2

REPORT INFORMATION
  Report Type: Spontaneous
  Country: US (occurrence: US)
  Receive Date: 20230403
  Receipt Date: 20230403
  Transmission Date: 20230721
  Serious: No
  Sender: FDA-Public Use
  Company Number: US-PFIZER INC-202300138330

PATIENT
  Age: 70 Year
  Sex: Female

DRUGS (13)
  1. PAXLOVID [Suspect]
     Active Substance: NIRMATRELVIR\RITONAVIR
     Indication: COVID-19 treatment
     Dosage: UNK
     Dates: start: 20230317, end: 20230321
  2. DULOXETINE HYDROCHLORIDE [Concomitant]
     Active Substance: DULOXETINE HYDROCHLORIDE
     Dosage: UNK
  3. CELEBREX [Concomitant]
     Active Substance: CELECOXIB
     Dosage: UNK
  4. VALACYCLOVIR [Concomitant]
     Active Substance: VALACYCLOVIR HYDROCHLORIDE
  5. MONTELUKAST [Concomitant]
     Active Substance: MONTELUKAST SODIUM
     Dosage: UNK
  6. ARMOUR THYROID [Concomitant]
     Active Substance: THYROID, PORCINE
     Dosage: UNK
  7. SPIRONOLACTONE [Concomitant]
     Active Substance: SPIRONOLACTONE
     Dosage: UNK
  8. FLUTICASONE PROPIONATE [Concomitant]
     Active Substance: FLUTICASONE PROPIONATE
     Dosage: UNK
  9. GLUCOSAMINE SULFATE [Concomitant]
     Active Substance: GLUCOSAMINE SULFATE
     Dosage: UNK
  10. OMEGA 3 + COQ10 [Concomitant]
  11. MERIVA 500 SF [Concomitant]
  12. B-COMPLEX [AMINOBENZOIC ACID;CALCIUM PANTOTHENATE;CYANOCOBALAMIN;NICOT [Concomitant]
     Dosage: UNK
  13. VITAMINS NOS [Concomitant]
     Active Substance: VITAMINS
     Dosage: UNK

REACTIONS (2)
  - COVID-19 [Not Recovered/Not Resolved]
  - Disease recurrence [Not Recovered/Not Resolved]

NARRATIVE: CASE EVENT DATE: 20230329
